FAERS Safety Report 6385187-6 (Version None)
Quarter: 2009Q4

REPORT INFORMATION
  Report Type: 
  Country: None (occurrence: None)
  Receive Date: 20091002
  Receipt Date: 20080910
  Transmission Date: 20100525
  Serious: No
  Sender: FDA-Public Use
  Company Number: US-ASTRAZENECA-2005UW11032

PATIENT
  Age: 77 Year
  Sex: Female

DRUGS (8)
  1. ARIMIDEX [Suspect]
     Indication: BREAST CANCER IN SITU
     Dosage: 1 MG
     Route: 048
     Dates: start: 20050101
  2. LIPITOR [Concomitant]
  3. LYCINE [Concomitant]
     Indication: ORAL HERPES
  4. DIOVAN [Concomitant]
  5. GLYBURIDE [Concomitant]
  6. COLACE [Concomitant]
  7. ASPIRIN [Concomitant]
  8. FOSAMAX (GENERIC) [Concomitant]
     Indication: OSTEOARTHRITIS

REACTIONS (8)
  - BLOOD GLUCOSE INCREASED [None]
  - BONE PAIN [None]
  - FATIGUE [None]
  - HEMIPARESIS [None]
  - HOT FLUSH [None]
  - INSOMNIA [None]
  - NIGHT SWEATS [None]
  - OSTEOARTHRITIS [None]
